FAERS Safety Report 5115849-X (Version None)
Quarter: 2006Q3

REPORT INFORMATION
  Report Type: 
  Country: None (occurrence: None)
  Receive Date: 20060926
  Receipt Date: 20060926
  Transmission Date: 20061208
  Serious: Yes (Life-Threatening, Hospitalization)
  Sender: FDA-Public Use
  Company Number: None

PATIENT
  Age: 29 Year
  Sex: Female
  Weight: 55.3388 kg

DRUGS (2)
  1. BACTRIM [Suspect]
     Indication: ABDOMINAL DISCOMFORT
     Dosage: 1 PILL   3 X DAY   PO
     Route: 048
     Dates: start: 20060816, end: 20060826
  2. BACTRIM [Suspect]
     Indication: ARTHROPOD BITE
     Dosage: 1 PILL   3 X DAY   PO
     Route: 048
     Dates: start: 20060816, end: 20060826

REACTIONS (3)
  - SCAR [None]
  - STEVENS-JOHNSON SYNDROME [None]
  - VISION BLURRED [None]
